FAERS Safety Report 13680857 (Version 3)
Quarter: 2017Q2

REPORT INFORMATION
  Report Type: Spontaneous
  Country: AT (occurrence: AT)
  Receive Date: 20170623
  Receipt Date: 20170628
  Transmission Date: 20170830
  Serious: Yes (Death)
  Sender: FDA-Public Use
  Company Number: AT-BIOGEN-2017BI00420707

PATIENT
  Age: 7 Month
  Sex: Male

DRUGS (3)
  1. SPINRAZA [Suspect]
     Active Substance: NUSINERSEN
     Indication: SPINAL MUSCULAR ATROPHY
     Route: 037
     Dates: start: 20170223, end: 20170330
  2. OLEOVIT D3 [Concomitant]
     Active Substance: CHOLECALCIFEROL
     Indication: PRODUCT USED FOR UNKNOWN INDICATION
     Route: 065
  3. NUREFLEX [Concomitant]
     Active Substance: IBUPROFEN
     Indication: PRODUCT USED FOR UNKNOWN INDICATION
     Dosage: 20MG/ML
     Route: 065
     Dates: start: 20170330, end: 20170402

REACTIONS (4)
  - Apnoea [Fatal]
  - Aspiration [Fatal]
  - Respiratory failure [Fatal]
  - Spinal muscular atrophy [Fatal]

NARRATIVE: CASE EVENT DATE: 20170409
